FAERS Safety Report 8307694-9 (Version None)
Quarter: 2012Q2

REPORT INFORMATION
  Report Type: 
  Country: None (occurrence: None)
  Receive Date: 20120424
  Receipt Date: 20120424
  Transmission Date: 20120825
  Serious: Yes (Death, Other)
  Sender: FDA-Public Use
  Company Number: None

PATIENT
  Sex: Male
  Weight: 94.8 kg

DRUGS (2)
  1. CITALOPRAM HYDROBROMIDE [Suspect]
     Indication: DEPRESSION
     Dates: start: 20110225, end: 20110530
  2. CITALOPRAM HYDROBROMIDE [Suspect]
     Indication: ANXIETY
     Dates: start: 20110225, end: 20110530

REACTIONS (5)
  - GASTROINTESTINAL HAEMORRHAGE [None]
  - HYPERTENSION [None]
  - SWOLLEN TONGUE [None]
  - SWELLING FACE [None]
  - ANKLE FRACTURE [None]
